FAERS Safety Report 15297648 (Version 1)
Quarter: 2018Q3

REPORT INFORMATION
  Report Type: Spontaneous
  Country: JP (occurrence: JP)
  Receive Date: 20180820
  Receipt Date: 20180820
  Transmission Date: 20181010
  Serious: Yes (Death)
  Sender: FDA-Public Use
  Company Number: JP-HQ SPECIALTY-JP-2018INT000140

PATIENT
  Sex: Male

DRUGS (16)
  1. CISPLATIN. [Suspect]
     Active Substance: CISPLATIN
     Dosage: UNK, (1 COURSE)
     Route: 065
  2. NEDAPLATIN [Suspect]
     Active Substance: NEDAPLATIN
     Dosage: UNK, (1 COURSE)
  3. ETOPOSIDE. [Suspect]
     Active Substance: ETOPOSIDE
     Dosage: UNK, (4 COURSES)
     Route: 065
  4. GEMCITABINE [Concomitant]
     Active Substance: GEMCITABINE\GEMCITABINE HYDROCHLORIDE
     Indication: TESTICULAR GERM CELL TUMOUR
     Dosage: UNK, (1 COURSE)
  5. IFOSFAMIDE. [Suspect]
     Active Substance: IFOSFAMIDE
     Dosage: UNK, (2 COURSES)
  6. IFOSFAMIDE. [Suspect]
     Active Substance: IFOSFAMIDE
     Indication: TESTICULAR GERM CELL TUMOUR
     Dosage: UNK, (4 COURSES)
  7. NEDAPLATIN [Suspect]
     Active Substance: NEDAPLATIN
     Indication: TESTICULAR GERM CELL TUMOUR
     Dosage: UNK, (2 COURSE)
  8. BLEOMYCIN [Concomitant]
     Active Substance: BLEOMYCIN SULFATE
     Indication: TESTICULAR GERM CELL TUMOUR
     Dosage: UNK, (2 COURSES)
     Route: 065
  9. IRINOTECAN [Concomitant]
     Active Substance: IRINOTECAN
     Indication: TESTICULAR GERM CELL TUMOUR
     Dosage: UNK, (9 COURSES)
  10. PACLITAXEL. [Suspect]
     Active Substance: PACLITAXEL
     Indication: TESTICULAR GERM CELL TUMOUR
     Dosage: UNK, (2 COURSES)
     Route: 065
  11. PACLITAXEL. [Suspect]
     Active Substance: PACLITAXEL
     Dosage: UNK, (1 COURSE)
     Route: 065
  12. CISPLATIN. [Suspect]
     Active Substance: CISPLATIN
     Indication: GERM CELL NEOPLASM
     Dosage: UNK , (2 COURSES)
     Route: 065
  13. CISPLATIN. [Suspect]
     Active Substance: CISPLATIN
     Dosage: UNK, (9 COURSES)
     Route: 065
  14. ETOPOSIDE. [Suspect]
     Active Substance: ETOPOSIDE
     Indication: TESTICULAR GERM CELL TUMOUR
     Dosage: UNK, (2 COURSES)
     Route: 065
  15. CISPLATIN. [Suspect]
     Active Substance: CISPLATIN
     Dosage: UNK, (4 COURSES)
     Route: 065
  16. IRINOTECAN [Concomitant]
     Active Substance: IRINOTECAN
     Dosage: UNK, (1 COURSE)

REACTIONS (1)
  - Myelodysplastic syndrome [Fatal]
